FAERS Safety Report 14309892 (Version 2)
Quarter: 2018Q1

REPORT INFORMATION
  Report Type: Spontaneous
  Country: US (occurrence: US)
  Receive Date: 20171220
  Receipt Date: 20180221
  Transmission Date: 20180509
  Serious: Yes (Other)
  Sender: FDA-Public Use
  Company Number: US-OTSUKA-2017_027531

PATIENT
  Sex: Male

DRUGS (5)
  1. VENTOLIN HFA [Concomitant]
     Active Substance: ALBUTEROL SULFATE
     Indication: DYSPNOEA
     Dosage: Q4HR (INHALE 2 PUFFS EVERY FOUR HOURS)
     Route: 055
     Dates: start: 20171206
  2. PRILOSEC [Concomitant]
     Active Substance: OMEPRAZOLE MAGNESIUM
     Dosage: 2 DF, QD(40 MG TOTAL)
     Route: 048
     Dates: start: 20171206
  3. REXULTI [Suspect]
     Active Substance: BREXPIPRAZOLE
     Indication: SCHIZOPHRENIA
  4. REXULTI [Suspect]
     Active Substance: BREXPIPRAZOLE
     Indication: MAJOR DEPRESSION
     Dosage: 2 MG, QD
     Route: 048
     Dates: start: 2017
  5. PRILOSEC [Concomitant]
     Active Substance: OMEPRAZOLE MAGNESIUM
     Indication: PRODUCT USED FOR UNKNOWN INDICATION
     Dosage: 20MG QD, 2 PO QD
     Route: 048

REACTIONS (13)
  - Vitamin B12 deficiency [Unknown]
  - Haematuria [Unknown]
  - Back pain [Unknown]
  - Dysuria [Unknown]
  - Muscle spasms [Unknown]
  - Incorrect dose administered [Unknown]
  - Hepatic enzyme increased [Not Recovered/Not Resolved]
  - Abdominal pain [Unknown]
  - Nephrolithiasis [Not Recovered/Not Resolved]
  - Product packaging issue [Unknown]
  - Pruritus generalised [Unknown]
  - Jaundice [Not Recovered/Not Resolved]
  - Arthralgia [Unknown]

NARRATIVE: CASE EVENT DATE: 2017
